FAERS Safety Report 5030191-3 (Version None)
Quarter: 2006Q2

REPORT INFORMATION
  Report Type: 
  Country: None (occurrence: None)
  Receive Date: 20060614
  Receipt Date: 20060524
  Transmission Date: 20061013
  Serious: Yes (Other)
  Sender: FDA-Public Use
  Company Number: ZA200605005594

PATIENT
  Age: 55 Year
  Sex: Male

DRUGS (2)
  1. CIALIS [Suspect]
     Indication: ERECTILE DYSFUNCTION
     Dosage: 10 MG, AS NEEDED, ORAL
     Route: 048
  2. DIOVAN [Concomitant]

REACTIONS (2)
  - CLONIC CONVULSION [None]
  - LOSS OF CONSCIOUSNESS [None]
